FAERS Safety Report 9367006 (Version 1)
Quarter: 2013Q2

REPORT INFORMATION
  Report Type: Spontaneous
  Country: US (occurrence: US)
  Receive Date: 20130625
  Receipt Date: 20130625
  Transmission Date: 20140414
  Serious: Yes (Hospitalization)
  Sender: FDA-Public Use
  Company Number: US-BAYER-2013-076387

PATIENT
  Age: 30 Year
  Sex: Female
  Weight: 72.56 kg

DRUGS (10)
  1. YAZ [Suspect]
  2. GIANVI [Suspect]
  3. TRAMADOL [Concomitant]
     Indication: PAIN MANAGEMENT
  4. ROBAXIN [Concomitant]
  5. OSCAL [Concomitant]
  6. GLYCOLAX [Concomitant]
  7. HYDROQUINONE [Concomitant]
  8. SENNA [Concomitant]
  9. HYDROCODONE W/ACETAMINOPHEN [Concomitant]
  10. FLUOROURACIL [Concomitant]

REACTIONS (2)
  - Pulmonary embolism [Recovered/Resolved]
  - Deep vein thrombosis [Recovered/Resolved]
